FAERS Safety Report 9279561 (Version 4)
Quarter: 2016Q2

REPORT INFORMATION
  Report Type: Report from Study
  Country: CA (occurrence: CA)
  Receive Date: 20130509
  Receipt Date: 20160418
  Transmission Date: 20160815
  Serious: Yes (Hospitalization, Other)
  Sender: FDA-Public Use
  Company Number: CA-ROCHE-1222018

PATIENT
  Age: 40 Year
  Sex: Female
  Weight: 67 kg

DRUGS (8)
  1. SULFATRIM [Concomitant]
     Active Substance: SULFAMETHOXAZOLE\TRIMETHOPRIM
  2. RITUXAN [Suspect]
     Active Substance: RITUXIMAB
     Indication: GRANULOMATOSIS WITH POLYANGIITIS
  3. RITUXAN [Suspect]
     Active Substance: RITUXIMAB
     Indication: VASCULITIS
  4. IMURAN [Concomitant]
     Active Substance: AZATHIOPRINE
  5. METHYLPREDNISOLONE. [Concomitant]
     Active Substance: METHYLPREDNISOLONE
     Route: 042
     Dates: start: 20121128
  6. RITUXAN [Suspect]
     Active Substance: RITUXIMAB
     Indication: GRANULOMATOSIS WITH POLYANGIITIS
     Route: 042
     Dates: start: 20121128
  7. ACETAMINOPHEN. [Concomitant]
     Active Substance: ACETAMINOPHEN
     Route: 048
     Dates: start: 20121128
  8. DIPHENHYDRAMINE HCL [Concomitant]
     Active Substance: DIPHENHYDRAMINE HYDROCHLORIDE
     Route: 048
     Dates: start: 20121128

REACTIONS (9)
  - Granulomatosis with polyangiitis [Not Recovered/Not Resolved]
  - Antineutrophil cytoplasmic antibody decreased [Recovering/Resolving]
  - Bacterial test positive [Unknown]
  - White blood cells urine [Unknown]
  - Antineutrophil cytoplasmic antibody positive [Unknown]
  - Vasculitis [Not Recovered/Not Resolved]
  - Schwannoma [Unknown]
  - Joint dislocation [Unknown]
  - Arthralgia [Unknown]

NARRATIVE: CASE EVENT DATE: 2013
